FAERS Safety Report 6160141-8 (Version None)
Quarter: 2009Q2

REPORT INFORMATION
  Report Type: 
  Country: None (occurrence: None)
  Receive Date: 20090420
  Receipt Date: 20090410
  Transmission Date: 20091009
  Serious: Yes (Hospitalization)
  Sender: FDA-Public Use
  Company Number: A0735358A

PATIENT
  Age: 40 Year
  Sex: Male
  Weight: 141.8 kg

DRUGS (8)
  1. AVANDIA [Suspect]
     Dosage: 8MG PER DAY
     Route: 048
     Dates: start: 19990501, end: 20060413
  2. AVANDAMET [Suspect]
     Route: 048
     Dates: start: 20070201, end: 20070730
  3. GLUCOPHAGE [Concomitant]
  4. METFORMIN HCL [Concomitant]
  5. INSULIN [Concomitant]
  6. LIPITOR [Concomitant]
  7. FLONASE [Concomitant]
  8. ATROVENT [Concomitant]

REACTIONS (1)
  - MYOCARDIAL INFARCTION [None]
